FAERS Safety Report 6494213-5 (Version None)
Quarter: 2009Q4

REPORT INFORMATION
  Report Type: 
  Country: None (occurrence: None)
  Receive Date: 20091214
  Receipt Date: 20090122
  Transmission Date: 20100525
  Serious: No
  Sender: FDA-Public Use
  Company Number: US-BRISTOL-MYERS SQUIBB COMPANY-14479984

PATIENT
  Age: 26 Year
  Sex: Female

DRUGS (7)
  1. ABILIFY [Suspect]
     Indication: ANXIETY
  2. ABILIFY [Suspect]
     Indication: DEPRESSION
  3. LAMICTAL [Concomitant]
  4. SINGULAIR [Concomitant]
  5. ADVAIR DISKUS 100/50 [Concomitant]
  6. LEXAPRO [Concomitant]
  7. PROVENTIL [Concomitant]

REACTIONS (1)
  - CONTUSION [None]
